FAERS Safety Report 13544106 (Version 1)
Quarter: 2017Q2

REPORT INFORMATION
  Report Type: Spontaneous
  Country: US (occurrence: US)
  Receive Date: 20170512
  Receipt Date: 20170512
  Transmission Date: 20170830
  Serious: Yes (Hospitalization, Other)
  Sender: FDA-Public Use
  Company Number: None

PATIENT
  Age: 22 Year
  Sex: Female
  Weight: 83 kg

DRUGS (2)
  1. OXYTOCIN 10 UNITS/ML [Suspect]
     Active Substance: OXYTOCIN
     Indication: POSTPARTUM HAEMORRHAGE
     Route: 041
  2. OXYTOCIN 10 UNITS/ML [Suspect]
     Active Substance: OXYTOCIN
     Indication: UTERINE ATONY
     Route: 041

REACTIONS (2)
  - Hypotension [None]
  - Drug ineffective [None]

NARRATIVE: CASE EVENT DATE: 20170510
